FAERS Safety Report 8001389-7 (Version None)
Quarter: 2011Q4

REPORT INFORMATION
  Report Type: 
  Country: None (occurrence: None)
  Receive Date: 20111219
  Receipt Date: 20111207
  Transmission Date: 20120403
  Serious: Yes (Other)
  Sender: FDA-Public Use
  Company Number: TPA2011A08288

PATIENT
  Age: 80 Year
  Sex: Male

DRUGS (1)
  1. ACTOS [Suspect]
     Dosage: 15 MG

REACTIONS (1)
  - BLADDER CANCER [None]
